FAERS Safety Report 4865272-8 (Version None)
Quarter: 2005Q4

REPORT INFORMATION
  Report Type: 
  Country: None (occurrence: None)
  Receive Date: 20051223
  Receipt Date: 20051222
  Transmission Date: 20060501
  Serious: Yes (Death, Other)
  Sender: FDA-Public Use
  Company Number: JP-SANOFI-SYNTHELABO-F01200502847

PATIENT
  Sex: Female
  Weight: 53 kg

DRUGS (4)
  1. OXALIPLATIN [Suspect]
     Indication: COLON CANCER
     Route: 042
     Dates: start: 20050713, end: 20050713
  2. FLUOROURACIL [Suspect]
     Dosage: 335.6 MG/M2 IV BOLUS AND 503.4 MG/M2 IV 22 HOURS CONTINUOUS INFUSION, Q2W
     Route: 040
     Dates: start: 20050713, end: 20050714
  3. FLUOROURACIL [Suspect]
     Route: 042
     Dates: start: 20050713, end: 20050714
  4. CALCIUM LEVOFOLINATE [Suspect]
     Dosage: GIVEN ON DAYS1+2 EACH CYCLE
     Route: 042
     Dates: start: 20050713, end: 20050714

REACTIONS (1)
  - NEUTROPENIA [None]
